FAERS Safety Report 21234342 (Version 1)
Quarter: 2022Q3

REPORT INFORMATION
  Report Type: Spontaneous
  Country: GB (occurrence: GB)
  Receive Date: 20220819
  Receipt Date: 20220819
  Transmission Date: 20221026
  Serious: Yes (Hospitalization)
  Sender: FDA-Public Use
  Company Number: None

PATIENT
  Sex: Female

DRUGS (8)
  1. SITAGLIPTIN PHOSPHATE [Suspect]
     Active Substance: SITAGLIPTIN PHOSPHATE
     Dosage: PLEASE CHANGE TO: 25MG, 2 MORNING AND 1 AT NIGHT
     Dates: start: 20220726
  2. ATORVASTATIN [Suspect]
     Active Substance: ATORVASTATIN
     Dosage: 10 MILLIGRAM, ONE AT NIGHT
     Dates: start: 20220726
  3. CARBIDOPA\LEVODOPA [Suspect]
     Active Substance: CARBIDOPA\LEVODOPA
     Dosage: 12.5/50MG- 2 IN MORNING,25/100MG- ONE AT NIGHT
     Dates: start: 20220726
  4. CHOLECALCIFEROL [Suspect]
     Active Substance: CHOLECALCIFEROL
     Dosage: 800 -1 ONE IN MORNING
     Dates: start: 20220726
  5. GLICLAZIDE [Suspect]
     Active Substance: GLICLAZIDE
     Dosage: 60 MR, ONE MORNING AND NIGHT
     Dates: start: 20220726
  6. LEVOTHYROXINE [Suspect]
     Active Substance: LEVOTHYROXINE
     Dosage: 100 MCG, ONE DAILY (25 MCG ONE DAILY)
     Route: 050
     Dates: start: 20220726
  7. METFORMIN [Suspect]
     Active Substance: METFORMIN HYDROCHLORIDE
     Dosage: 500 MG, MR ONE DAILY
     Dates: start: 20220726
  8. HERBALS [Suspect]
     Active Substance: HERBALS
     Dosage: 7.5 MG-2 AT NIGHT
     Dates: start: 20220726

REACTIONS (3)
  - Loss of consciousness [Unknown]
  - Wrong product administered [Unknown]
  - Wrong patient received product [Unknown]

NARRATIVE: CASE EVENT DATE: 20220726
